FAERS Safety Report 23470759 (Version 1)
Quarter: 2024Q1

REPORT INFORMATION
  Report Type: Spontaneous
  Country: US (occurrence: US)
  Receive Date: 20240202
  Receipt Date: 20240202
  Transmission Date: 20240410
  Serious: No
  Sender: FDA-Public Use
  Company Number: US-BAYER-2024A012938

PATIENT
  Age: 55 Year
  Sex: Female

DRUGS (1)
  1. MIRENA [Suspect]
     Active Substance: LEVONORGESTREL
     Dosage: 20?G/DAY
     Route: 015
     Dates: start: 2008, end: 2019

REACTIONS (7)
  - Headache [None]
  - Migraine [None]
  - Fatigue [None]
  - Pelvic pain [None]
  - Decreased appetite [None]
  - Alopecia [None]
  - Device use issue [None]
